FAERS Safety Report 6821000-8 (Version None)
Quarter: 2010Q3

REPORT INFORMATION
  Report Type: 
  Country: None (occurrence: None)
  Receive Date: 20100707
  Receipt Date: 20071120
  Transmission Date: 20110219
  Serious: No
  Sender: FDA-Public Use
  Company Number: US-PFIZER INC-2007073004

PATIENT
  Sex: Female
  Weight: 68.04 kg

DRUGS (6)
  1. ZOLOFT [Suspect]
     Indication: SLEEP DISORDER
  2. ZOLOFT [Suspect]
     Indication: DEPRESSION
  3. ZOLOFT [Suspect]
     Indication: CHRONIC FATIGUE SYNDROME
  4. SERTRALINE [Suspect]
     Indication: CHRONIC FATIGUE SYNDROME
  5. TOPAMAX [Concomitant]
  6. VITAMIN B-12 [Concomitant]

REACTIONS (3)
  - DRUG INEFFECTIVE [None]
  - VITAMIN B12 DECREASED [None]
  - WEIGHT INCREASED [None]
